FAERS Safety Report 24800783 (Version 1)
Quarter: 2025Q1

REPORT INFORMATION
  Report Type: Spontaneous
  Country: IE (occurrence: None)
  Receive Date: 20250102
  Receipt Date: 20250102
  Transmission Date: 20250409
  Serious: Yes (Hospitalization, Disabling, Other)
  Sender: FDA-CTU
  Company Number: None

PATIENT
  Age: 18 Year
  Sex: Female
  Weight: 76.2 kg

DRUGS (4)
  1. DEVICE [Suspect]
     Active Substance: DEVICE
  2. SODIUM AMYTAL [Suspect]
  3. IMIPRAMINE [Suspect]
     Active Substance: IMIPRAMINE
  4. CHLORPROMAZINE [Suspect]
     Active Substance: CHLORPROMAZINE

REACTIONS (7)
  - Amnesia [None]
  - Confusional state [None]
  - Sexual abuse [None]
  - Amenorrhoea [None]
  - Stress [None]
  - Aphasia [None]
  - Cerebral atrophy [None]

NARRATIVE: CASE EVENT DATE: 19761122
